FAERS Safety Report 10214154 (Version 1)
Quarter: 2014Q2

REPORT INFORMATION
  Report Type: Spontaneous
  Country: AU (occurrence: None)
  Receive Date: 20140530
  Receipt Date: 20140530
  Transmission Date: 20141212
  Serious: Yes (Hospitalization)
  Sender: FDA-Public Use
  Company Number: 2014-001495

PATIENT
  Age: 81 Year
  Sex: Female
  Weight: 78 kg

DRUGS (8)
  1. ACTONEL COMBI D (RISEDRONATE SODIUM CALCIUM CARBONATE VITAMIN D3) EFFERVESCENT GRANULES, 35MG [Suspect]
     Route: 048
  2. ACTONEL [Suspect]
     Route: 048
     Dates: start: 2008
  3. ALENDRONATE [Suspect]
     Route: 048
     Dates: start: 2006, end: 2008
  4. ESTRADIOL [Suspect]
     Indication: HORMONE REPLACEMENT THERAPY
     Dates: start: 2006, end: 2008
  5. FLUTICASONE W/SALMETEROL [Suspect]
     Dosage: 2 PUFFS TWICE DAILY, RESPIRATORY
  6. SIMVASTATIN (SIMVASTATIN) [Concomitant]
  7. FRUSEMIDE (FUROSEMIDE) [Concomitant]
  8. PARACETAMOL (PARACETAMOL) [Concomitant]

REACTIONS (7)
  - Atypical femur fracture [None]
  - Pathological fracture [None]
  - Fall [None]
  - Weight bearing difficulty [None]
  - Arthralgia [None]
  - Hypophosphataemia [None]
  - Arthralgia [None]
